FAERS Safety Report 16628583 (Version 3)
Quarter: 2019Q3

REPORT INFORMATION
  Report Type: Spontaneous
  Country: US (occurrence: US)
  Receive Date: 20190725
  Receipt Date: 20190813
  Transmission Date: 20191004
  Serious: Yes (Other)
  Sender: FDA-Public Use
  Company Number: US-009507513-1907USA010378

PATIENT
  Age: 31 Year
  Sex: Female

DRUGS (9)
  1. AZITHROMYCIN ANHYDROUS. [Concomitant]
     Active Substance: AZITHROMYCIN ANHYDROUS
  2. GANIRELIX ACETATE INJECTION [Suspect]
     Active Substance: GANIRELIX ACETATE
     Dosage: 250 MICROGRAM FREQUENCY REPORTED AS ^AS DIRECTED^
     Route: 058
  3. FOLLISTIM [Suspect]
     Active Substance: FOLLITROPIN
     Indication: INFERTILITY FEMALE
     Dosage: 150 UNITS; FREQUENCY REPORTED AS ^AS DIRECTED^
     Route: 058
     Dates: start: 20190710
  4. ENDOMETRIN [Concomitant]
     Active Substance: PROGESTERONE
  5. LEUPROLIDE [Concomitant]
     Active Substance: LEUPROLIDE
  6. CABERGOLINE. [Concomitant]
     Active Substance: CABERGOLINE
  7. PREGNYL [Suspect]
     Active Substance: CHORIOGONADOTROPIN ALFA
     Dosage: 10 000 UNITS; FREQUENCY REPORTED AS ^AS DIRECTED^
     Route: 058
  8. MENOPUR [Suspect]
     Active Substance: FOLLITROPIN\LUTEINIZING HORMONE
     Dosage: UNK
  9. METHYLPREDNISOLONE. [Concomitant]
     Active Substance: METHYLPREDNISOLONE

REACTIONS (4)
  - Syncope [Unknown]
  - Head injury [Unknown]
  - Contusion [Unknown]
  - Skin swelling [Unknown]

NARRATIVE: CASE EVENT DATE: 20190714
